FAERS Safety Report 10798683 (Version 1)
Quarter: 2015Q1

REPORT INFORMATION
  Report Type: Other
  Country: DE (occurrence: DE)
  Receive Date: 20150216
  Receipt Date: 20150216
  Transmission Date: 20150721
  Serious: Yes (Hospitalization, Other)
  Sender: FDA-Public Use
  Company Number: DE-APOTEX-2015AP006602

PATIENT
  Sex: Male
  Weight: 3.75 kg

DRUGS (5)
  1. PAXIL [Suspect]
     Active Substance: PAROXETINE HYDROCHLORIDE
     Indication: DEPRESSION
     Dosage: DECREASED FROM 60MG/D TO 20MG/D STEP BY STEP
     Route: 064
     Dates: start: 20140331, end: 20150101
  2. L-THYROXIN [Concomitant]
     Active Substance: LEVOTHYROXINE SODIUM
     Indication: HYPOTHYROIDISM
     Dosage: UNK
     Route: 064
     Dates: start: 20140331, end: 20141215
  3. FOLIC ACID. [Concomitant]
     Active Substance: FOLIC ACID
     Indication: PRODUCT USED FOR UNKNOWN INDICATION
     Dosage: UNK
     Route: 064
     Dates: start: 20140331, end: 20150101
  4. INSULIN [Suspect]
     Active Substance: INSULIN NOS
     Indication: GESTATIONAL DIABETES
     Route: 064
  5. SEROQUEL [Concomitant]
     Active Substance: QUETIAPINE FUMARATE
     Indication: PRODUCT USED FOR UNKNOWN INDICATION
     Dosage: 50 MG, DAILY
     Route: 064

REACTIONS (7)
  - Foetal heart rate decreased [Unknown]
  - Feeding disorder [Unknown]
  - Neonatal asphyxia [Recovered/Resolved]
  - Dyspnoea [Recovered/Resolved]
  - Foetal exposure during pregnancy [Unknown]
  - Pallor [Unknown]
  - Hypotonia [Unknown]
